FAERS Safety Report 6625918-0 (Version None)
Quarter: 2010Q1

REPORT INFORMATION
  Report Type: 
  Country: None (occurrence: None)
  Receive Date: 20100310
  Receipt Date: 20100216
  Transmission Date: 20100710
  Serious: Yes (Death)
  Sender: FDA-Public Use
  Company Number: US-SANOFI-AVENTIS-2009SA010131

PATIENT
  Age: 81 Year
  Sex: Female

DRUGS (3)
  1. LANTUS [Suspect]
     Indication: INSULIN RESISTANCE
     Dosage: GIVEN 46 UNITS AND ALSO REPORTED AS 48 UNITS.
     Route: 058
     Dates: start: 20080101, end: 20091201
  2. LANTUS [Suspect]
     Dosage: DOSE:48 UNIT(S)
     Route: 058
     Dates: start: 20091201, end: 20091201
  3. NOVOLIN R [Concomitant]
     Dates: end: 20091201

REACTIONS (3)
  - BLOOD GLUCOSE INCREASED [None]
  - DRUG INEFFECTIVE [None]
  - MYOCARDIAL INFARCTION [None]
